FAERS Safety Report 8329700-8 (Version None)
Quarter: 2012Q2

REPORT INFORMATION
  Report Type: 
  Country: None (occurrence: None)
  Receive Date: 20120502
  Receipt Date: 20120306
  Transmission Date: 20120825
  Serious: Yes (Hospitalization)
  Sender: FDA-Public Use
  Company Number: JP-GLAXOSMITHKLINE-B0787125A

PATIENT
  Sex: Female

DRUGS (9)
  1. LAMICTAL [Suspect]
     Dosage: 100MG PER DAY
     Route: 048
     Dates: start: 20120224, end: 20120227
  2. SILECE [Concomitant]
     Dosage: 4MG PER DAY
     Route: 048
     Dates: start: 20120203
  3. PAXIL [Concomitant]
     Dosage: 20MG PER DAY
     Route: 048
     Dates: start: 20111014
  4. DEPAS [Concomitant]
     Route: 048
  5. LAMICTAL [Suspect]
     Indication: BIPOLAR DISORDER
     Dosage: 25MG PER DAY
     Route: 048
     Dates: start: 20120120, end: 20120203
  6. LENDORMIN [Concomitant]
     Dosage: .25MG PER DAY
     Route: 048
     Dates: start: 20111022
  7. LITHIUM CARBONATE [Concomitant]
     Dosage: 400MG PER DAY
     Route: 048
     Dates: start: 20120127
  8. LAMICTAL [Suspect]
     Dosage: 50MG PER DAY
     Route: 048
     Dates: start: 20120203, end: 20120224
  9. LORAZEPAM [Concomitant]
     Dosage: 1MG PER DAY
     Route: 048
     Dates: start: 20111207

REACTIONS (9)
  - RASH [None]
  - ILL-DEFINED DISORDER [None]
  - DRUG RASH WITH EOSINOPHILIA AND SYSTEMIC SYMPTOMS [None]
  - LOCAL SWELLING [None]
  - LYMPHADENOPATHY [None]
  - PYREXIA [None]
  - SKIN DISORDER [None]
  - LYMPHADENITIS VIRAL [None]
  - NECK MASS [None]
